FAERS Safety Report 7241179-6 (Version None)
Quarter: 2011Q1

REPORT INFORMATION
  Report Type: 
  Country: None (occurrence: None)
  Receive Date: 20110120
  Receipt Date: 20110120
  Transmission Date: 20110831
  Serious: No
  Sender: FDA-Public Use
  Company Number: None

PATIENT
  Sex: Female
  Weight: 68.0396 kg

DRUGS (1)
  1. ZYCLARA [Suspect]
     Indication: PRECANCEROUS SKIN LESION
     Dosage: SPOT DAILY / 2 WKS
     Dates: start: 20101207, end: 20101221

REACTIONS (4)
  - ORAL MUCOSAL DISCOLOURATION [None]
  - LIP SWELLING [None]
  - SCAB [None]
  - LIP PAIN [None]
